FAERS Safety Report 4739454-X (Version None)
Quarter: 2005Q3

REPORT INFORMATION
  Report Type: 
  Country: None (occurrence: None)
  Receive Date: 20050808
  Receipt Date: 20050808
  Transmission Date: 20060218
  Serious: Yes (Other)
  Sender: FDA-Public Use
  Company Number: None

PATIENT
  Sex: Female
  Weight: 63.5036 kg

DRUGS (1)
  1. PHENTERMINE [Suspect]
     Indication: OVERWEIGHT
     Dosage: 37.5 ONCE DAILY ORAL
     Route: 048
     Dates: start: 19970401, end: 20050801

REACTIONS (2)
  - ANXIETY [None]
  - TACHYARRHYTHMIA [None]
